FAERS Safety Report 7063538-7 (Version None)
Quarter: 2010Q4

REPORT INFORMATION
  Report Type: 
  Country: None (occurrence: None)
  Receive Date: 20101026
  Receipt Date: 20100514
  Transmission Date: 20110411
  Serious: No
  Sender: FDA-Public Use
  Company Number: US-ABBOTT-10P-163-0645618-00

PATIENT
  Sex: Female

DRUGS (2)
  1. LUPRON DEPOT [Suspect]
     Indication: PRODUCT USED FOR UNKNOWN INDICATION
     Route: 030
     Dates: start: 20100101, end: 20100401
  2. LUPRON DEPOT [Suspect]
     Route: 030
     Dates: start: 20100401

REACTIONS (2)
  - METRORRHAGIA [None]
  - MUSCLE SPASMS [None]
